FAERS Safety Report 7708100-5 (Version None)
Quarter: 2011Q3

REPORT INFORMATION
  Report Type: 
  Country: None (occurrence: None)
  Receive Date: 20110825
  Receipt Date: 20110822
  Transmission Date: 20111222
  Serious: Yes (Hospitalization)
  Sender: FDA-Public Use
  Company Number: DE-BIOGENIDEC-2011BI031768

PATIENT
  Age: 21 Year
  Sex: Male
  Weight: 73 kg

DRUGS (2)
  1. TYSABRI [Suspect]
     Indication: MULTIPLE SCLEROSIS
     Route: 042
     Dates: start: 20070920, end: 20110428
  2. TYSABRI [Suspect]
     Route: 042
     Dates: start: 20110609

REACTIONS (3)
  - LOCAL SWELLING [None]
  - MUMPS [None]
  - LARYNGEAL OEDEMA [None]
